FAERS Safety Report 8450346-5 (Version None)
Quarter: 2012Q2

REPORT INFORMATION
  Report Type: 
  Country: None (occurrence: None)
  Receive Date: 20120620
  Receipt Date: 20120618
  Transmission Date: 20120825
  Serious: Yes (Death, Other)
  Sender: FDA-Public Use
  Company Number: PHHY2011GT95304

PATIENT
  Age: 79 Year
  Sex: Female

DRUGS (1)
  1. ZOLEDRONOC ACID [Suspect]
     Indication: OSTEOPOROSIS
     Dosage: 1 VIAL (5 MG). THE MEDICATION WAS ADMINISTERED ONE AND A HALF WEEKS BEFORE PASSING AWAY
     Route: 042

REACTIONS (3)
  - MULTI-ORGAN FAILURE [None]
  - VOLVULUS [None]
  - ABDOMINAL PAIN [None]
